FAERS Safety Report 5048072-8 (Version None)
Quarter: 2006Q3

REPORT INFORMATION
  Report Type: 
  Country: None (occurrence: None)
  Receive Date: 20060711
  Receipt Date: 20060531
  Transmission Date: 20061208
  Serious: Yes (Other)
  Sender: FDA-Public Use
  Company Number: PHEH2006US07119

PATIENT
  Age: 50 Year
  Sex: Male
  Weight: 90.702 kg

DRUGS (1)
  1. GLEEVEC [Suspect]
     Indication: CHRONIC MYELOID LEUKAEMIA
     Dosage: 800 MG, QD
     Route: 048
     Dates: start: 20030801

REACTIONS (5)
  - ANAEMIA OF MALIGNANT DISEASE [None]
  - BONE DENSITY DECREASED [None]
  - ECZEMA [None]
  - HAEMOGLOBIN DECREASED [None]
  - OSTEOPOROSIS [None]
